FAERS Safety Report 23754233 (Version 2)
Quarter: 2024Q2

REPORT INFORMATION
  Report Type: Report from Study
  Country: KR (occurrence: KR)
  Receive Date: 20240418
  Receipt Date: 20240501
  Transmission Date: 20240716
  Serious: Yes (Hospitalization)
  Sender: FDA-Public Use
  Company Number: KR-PFIZER INC-PV202400049104

PATIENT
  Age: 56 Year
  Sex: Female
  Weight: 49.8 kg

DRUGS (15)
  1. AVIBACTAM SODIUM\CEFTAZIDIME [Suspect]
     Active Substance: AVIBACTAM SODIUM\CEFTAZIDIME
     Indication: Product used for unknown indication
     Dosage: TIME INTERVAL: 0.33333333 DAYS: 2.5 VIAL, 3X/DAY
     Route: 065
     Dates: start: 20240306, end: 20240320
  2. ANYTAL [Concomitant]
     Indication: Duodenal ulcer
     Dosage: UNK (TRIPLE LAYER)
     Route: 048
     Dates: start: 20240309, end: 20240320
  3. ANYTAL [Concomitant]
     Indication: Duodenal ulcer
     Dosage: UNK
     Route: 048
     Dates: start: 20240309, end: 20240320
  4. REBAMIPIDE [Concomitant]
     Active Substance: REBAMIPIDE
     Indication: Duodenal ulcer
     Route: 048
     Dates: start: 20240309, end: 20240320
  5. HERBALS [Concomitant]
     Active Substance: HERBALS
     Indication: Prophylaxis
     Dosage: UNK
     Route: 048
     Dates: start: 20240311
  6. ORNITHINE ASPARTATE [Concomitant]
     Active Substance: ORNITHINE ASPARTATE
     Indication: Chronic hepatitis
     Dosage: UNK
     Route: 042
     Dates: start: 20240301, end: 20240320
  7. TEICONIN [Concomitant]
     Indication: Infection prophylaxis
     Dosage: TIME INTERVAL: 1 TOTAL: ONCE
     Route: 042
     Dates: start: 20240301, end: 20240320
  8. NALOXONE HYDROCHLORIDE\OXYCODONE HYDROCHLORIDE [Concomitant]
     Active Substance: NALOXONE HYDROCHLORIDE\OXYCODONE HYDROCHLORIDE
     Indication: Gallbladder cancer
     Dosage: TARGI CR 20/10
     Route: 048
     Dates: start: 20240309
  9. URSODIOL [Concomitant]
     Active Substance: URSODIOL
     Indication: Chronic hepatitis
     Route: 048
     Dates: start: 20240309, end: 20240320
  10. DIETARY SUPPLEMENT\HERBALS\MILK THISTLE [Concomitant]
     Active Substance: MILK THISTLE
     Indication: Chronic hepatitis
     Dosage: UNK
     Route: 048
     Dates: start: 20240311
  11. DIETARY SUPPLEMENT\HERBALS\MILK THISTLE [Concomitant]
     Active Substance: MILK THISTLE
     Indication: Chronic hepatitis
     Dosage: UNK
     Route: 048
     Dates: start: 20240311
  12. SYNTHROID [Concomitant]
     Active Substance: LEVOTHYROXINE SODIUM
     Indication: Hypothyroidism
     Dosage: UNK
     Route: 048
     Dates: start: 20240318, end: 20240320
  13. NEXIUM [Concomitant]
     Active Substance: ESOMEPRAZOLE MAGNESIUM
     Indication: Prophylaxis
     Dosage: UNK
     Route: 042
     Dates: start: 20240222, end: 20240320
  14. K CAB [Concomitant]
     Indication: Duodenal ulcer
     Route: 048
     Dates: start: 20240309, end: 20240320
  15. TEGOPRAZAN [Concomitant]
     Active Substance: TEGOPRAZAN
     Indication: Product used for unknown indication
     Dosage: UNK
     Route: 048
     Dates: start: 20240309, end: 20240320

REACTIONS (2)
  - Gallbladder cancer [Recovered/Resolved]
  - Abdominal infection [Recovered/Resolved]

NARRATIVE: CASE EVENT DATE: 20240331
